FAERS Safety Report 7526502-7 (Version None)
Quarter: 2011Q2

REPORT INFORMATION
  Report Type: 
  Country: None (occurrence: None)
  Receive Date: 20110606
  Receipt Date: 20110523
  Transmission Date: 20111010
  Serious: Yes (Other)
  Sender: FDA-Public Use
  Company Number: US-JNJFOC-20110510433

PATIENT
  Sex: Female

DRUGS (5)
  1. REMICADE [Suspect]
     Route: 042
     Dates: end: 20110101
  2. PREDNISONE [Concomitant]
     Indication: RHEUMATOID ARTHRITIS
     Route: 048
  3. REMICADE [Suspect]
     Indication: RHEUMATOID ARTHRITIS
     Route: 042
  4. REMICADE [Suspect]
     Route: 042
     Dates: start: 20100401
  5. MEDROL [Concomitant]
     Indication: RHEUMATOID ARTHRITIS
     Route: 048

REACTIONS (11)
  - ARTHRALGIA [None]
  - INFLAMMATORY MARKER INCREASED [None]
  - INFUSION RELATED REACTION [None]
  - SOMNOLENCE [None]
  - DRUG INEFFECTIVE [None]
  - BACK PAIN [None]
  - PAIN [None]
  - DIZZINESS [None]
  - BACK DISORDER [None]
  - BED REST [None]
  - NASOPHARYNGITIS [None]
